FAERS Safety Report 20532573 (Version 1)
Quarter: 2022Q1

REPORT INFORMATION
  Report Type: Spontaneous
  Country: US (occurrence: US)
  Receive Date: 20220301
  Receipt Date: 20220301
  Transmission Date: 20220423
  Serious: No
  Sender: FDA-Public Use
  Company Number: US-PFIZER INC-202101103724

PATIENT
  Age: 36 Year
  Sex: Male

DRUGS (2)
  1. XELJANZ XR [Suspect]
     Active Substance: TOFACITINIB CITRATE
     Indication: Psoriatic arthropathy
     Dosage: 11 MG, 1X/DAY
     Route: 048
     Dates: start: 20210517
  2. XELJANZ XR [Suspect]
     Active Substance: TOFACITINIB CITRATE
     Indication: Psoriasis

REACTIONS (5)
  - Off label use [Unknown]
  - Product use issue [Unknown]
  - Pain in extremity [Unknown]
  - Condition aggravated [Unknown]
  - Headache [Unknown]

NARRATIVE: CASE EVENT DATE: 20210101
